FAERS Safety Report 8121709-2 (Version None)
Quarter: 2012Q1

REPORT INFORMATION
  Report Type: 
  Country: None (occurrence: None)
  Receive Date: 20120207
  Receipt Date: 20120207
  Transmission Date: 20120608
  Serious: Yes (Life-Threatening, Disabling)
  Sender: FDA-Public Use
  Company Number: None

PATIENT
  Sex: Female
  Weight: 74.3899 kg

DRUGS (1)
  1. PREDNISONE TAB [Suspect]
     Indication: SJOGREN'S SYNDROME
     Dosage: 4 TABLET DAILY
     Dates: start: 20111003, end: 20111124

REACTIONS (11)
  - ORAL MUCOSAL ERYTHEMA [None]
  - DYSPNOEA [None]
  - BODY TEMPERATURE INCREASED [None]
  - ORAL PAIN [None]
  - OEDEMA PERIPHERAL [None]
  - SKIN DISCOLOURATION [None]
  - GAIT DISTURBANCE [None]
  - PAIN IN EXTREMITY [None]
  - LIP DISORDER [None]
  - JOINT STIFFNESS [None]
  - PERIORBITAL HAEMATOMA [None]
